FAERS Safety Report 6761739-6 (Version None)
Quarter: 2010Q2

REPORT INFORMATION
  Report Type: 
  Country: None (occurrence: None)
  Receive Date: 20100609
  Receipt Date: 20100528
  Transmission Date: 20101027
  Serious: Yes (Other)
  Sender: FDA-Public Use
  Company Number: US-JNJFOC-20100303050

PATIENT
  Sex: Female
  Weight: 52.16 kg

DRUGS (8)
  1. REMICADE [Suspect]
     Indication: CROHN'S DISEASE
     Route: 042
  2. REMICADE [Suspect]
     Route: 042
  3. CHOLESTYRAMINE [Concomitant]
  4. PRENATAL MULTIPLE VITAMIN [Concomitant]
  5. VITAMIN C [Concomitant]
  6. VITAMIN D [Concomitant]
  7. CALCIUM CARBONATE [Concomitant]
  8. MAGNESIUM [Concomitant]

REACTIONS (3)
  - CROHN'S DISEASE [None]
  - DRUG EXPOSURE DURING PREGNANCY [None]
  - PREMATURE LABOUR [None]
